FAERS Safety Report 16949994 (Version 1)
Quarter: 2019Q4

REPORT INFORMATION
  Report Type: Report from Study
  Country: US (occurrence: US)
  Receive Date: 20191023
  Receipt Date: 20191023
  Transmission Date: 20200122
  Serious: Yes (Hospitalization)
  Sender: FDA-Public Use
  Company Number: US-ROCHE-2417673

PATIENT
  Age: 78 Year
  Sex: Female
  Weight: 51.8 kg

DRUGS (9)
  1. POLYETHYLENE GLYCOL [Concomitant]
     Active Substance: POLYETHYLENE GLYCOLS
     Indication: CONSTIPATION
     Route: 048
     Dates: start: 20190917
  2. PACLITAXEL. [Suspect]
     Active Substance: PACLITAXEL
     Indication: OVARIAN EPITHELIAL CANCER
     Dosage: ON 13/SEP/2019, PATIENT RECEIVED LAST DOSE OF PACLITAXEL.?DOSE: 70-80 MG/M2?ON 07/OCT/2019, PATIENT
     Route: 042
     Dates: start: 20190830
  3. ATEZOLIZUMAB. [Suspect]
     Active Substance: ATEZOLIZUMAB
     Indication: OVARIAN EPITHELIAL CANCER
     Dosage: ON 30/AUG/2019, PATIENT RECEIVED LAST DOSE OF ATEZOLIZUMAB.?ON 07/OCT/2019, PATIENT RECEIVED LAST DO
     Route: 041
     Dates: start: 20190830
  4. VANCOMYCIN [Concomitant]
     Active Substance: VANCOMYCIN
     Route: 042
     Dates: start: 20190918
  5. CARBOPLATIN. [Suspect]
     Active Substance: CARBOPLATIN
     Indication: OVARIAN EPITHELIAL CANCER
     Dosage: ON 30/AUG/2019, PATIENT RECEIVED LAST DOSE OF CARBOPLATIN.?DOSE: 5 TO 6 MG/ML?ON 07/OCT/2019, PATIEN
     Route: 042
     Dates: start: 20190830
  6. LOVENOX [Concomitant]
     Active Substance: ENOXAPARIN SODIUM
     Route: 058
     Dates: start: 20190917
  7. MAGNESIUM OXIDE. [Concomitant]
     Active Substance: MAGNESIUM OXIDE
     Route: 048
     Dates: start: 20190917
  8. VANCOMYCIN [Concomitant]
     Active Substance: VANCOMYCIN
     Route: 042
     Dates: start: 20190917, end: 20191006
  9. CEFEPIME [Concomitant]
     Active Substance: CEFEPIME HYDROCHLORIDE
     Indication: PYREXIA
     Route: 042
     Dates: start: 20190916

REACTIONS (2)
  - Infection [Recovered/Resolved]
  - Bacteraemia [Recovered/Resolved]

NARRATIVE: CASE EVENT DATE: 20190917
